FAERS Safety Report 15131292 (Version 2)
Quarter: 2023Q4

REPORT INFORMATION
  Report Type: Report from Study
  Country: US (occurrence: US)
  Receive Date: 20180711
  Receipt Date: 20231116
  Transmission Date: 20240110
  Serious: Yes (Other)
  Sender: FDA-Public Use
  Company Number: US-SHIRE-US201823456

PATIENT
  Sex: Female

DRUGS (1)
  1. HUMAN IMMUNOGLOBULIN G\HYALURONIDASE RECOMBINANT HUMAN [Suspect]
     Active Substance: HUMAN IMMUNOGLOBULIN G\HYALURONIDASE (HUMAN RECOMBINANT)
     Indication: Selective IgG subclass deficiency
     Dosage: UNK
     Route: 065

REACTIONS (11)
  - Renal impairment [Unknown]
  - Cerebral haemorrhage [Unknown]
  - Non-Hodgkin^s lymphoma [Unknown]
  - Infection [Unknown]
  - Drug hypersensitivity [Unknown]
  - Lung disorder [Unknown]
  - Vein disorder [Unknown]
  - Autoinflammatory disease [Unknown]
  - Migraine [Unknown]
  - Pyrexia [Unknown]
  - Inappropriate schedule of product administration [Unknown]
